FAERS Safety Report 4556878-4 (Version None)
Quarter: 2005Q1

REPORT INFORMATION
  Report Type: 
  Country: None (occurrence: None)
  Receive Date: 20050103
  Receipt Date: 20040916
  Transmission Date: 20050727
  Serious: Yes (Other)
  Sender: FDA-Public Use
  Company Number: 2004UW12613

PATIENT
  Age: 61 Year
  Sex: Female
  Weight: 55.7924 kg

DRUGS (10)
  1. CRESTOR [Suspect]
     Indication: BLOOD CHOLESTEROL INCREASED
     Dosage: 10 MG PO
     Route: 048
  2. CRESTOR [Suspect]
     Indication: BLOOD CHOLESTEROL INCREASED
     Dosage: 20 MG PO
     Route: 048
  3. ZETIA [Concomitant]
  4. ATENOLOL [Concomitant]
  5. NEURONTIN [Concomitant]
  6. CRESTOR [Suspect]
     Indication: BLOOD CHOLESTEROL INCREASED
     Dosage: 10 MG PO
     Route: 048
  7. BENTYL [Concomitant]
  8. PREMARIN [Concomitant]
  9. ASPIRIN [Concomitant]
  10. PREVACID [Concomitant]

REACTIONS (6)
  - DIARRHOEA [None]
  - DIZZINESS [None]
  - DYSPNOEA [None]
  - MYALGIA [None]
  - PAIN [None]
  - SKIN BURNING SENSATION [None]
